FAERS Safety Report 19651408 (Version 1)
Quarter: 2021Q3

REPORT INFORMATION
  Report Type: Spontaneous
  Country: US (occurrence: US)
  Receive Date: 20210731
  Receipt Date: 20210731
  Transmission Date: 20211014
  Serious: Yes (Hospitalization)
  Sender: FDA-Public Use
  Company Number: None

PATIENT
  Age: 79 Year
  Sex: Female
  Weight: 76.15 kg

DRUGS (1)
  1. CARBOPLATIN. [Suspect]
     Active Substance: CARBOPLATIN
     Dates: end: 20210706

REACTIONS (7)
  - Urine leukocyte esterase positive [None]
  - Bacterial test positive [None]
  - Paraesthesia [None]
  - Mediastinal mass [None]
  - American trypanosomiasis [None]
  - Hypoaesthesia [None]
  - Aortic aneurysm [None]

NARRATIVE: CASE EVENT DATE: 20210727
